FAERS Safety Report 5607523-8 (Version None)
Quarter: 2008Q1

REPORT INFORMATION
  Report Type: 
  Country: None (occurrence: None)
  Receive Date: 20080130
  Receipt Date: 20080122
  Transmission Date: 20080703
  Serious: Yes (Other)
  Sender: FDA-Public Use
  Company Number: PHBS2008CH01311

PATIENT
  Age: 62 Year
  Sex: Male

DRUGS (1)
  1. DICLOFENAC [Suspect]
     Indication: VIRAL INFECTION
     Route: 030

REACTIONS (5)
  - C-REACTIVE PROTEIN INCREASED [None]
  - INTERVERTEBRAL DISCITIS [None]
  - NECK PAIN [None]
  - STAPHYLOCOCCAL SEPSIS [None]
  - WHITE BLOOD CELL COUNT INCREASED [None]
